FAERS Safety Report 18006343 (Version 1)
Quarter: 2020Q3

REPORT INFORMATION
  Report Type: Spontaneous
  Country: FR (occurrence: FR)
  Receive Date: 20200709
  Receipt Date: 20200709
  Transmission Date: 20201103
  Serious: Yes (Hospitalization, Other)
  Sender: FDA-Public Use
  Company Number: FR-SUN PHARMACEUTICAL INDUSTRIES LTD-2020RR-253219

PATIENT
  Age: 70 Year
  Sex: Male

DRUGS (3)
  1. SIGNIFOR [Suspect]
     Active Substance: PASIREOTIDE DIASPARTATE
     Indication: PITUITARY-DEPENDENT CUSHING^S SYNDROME
     Dosage: 20 MILLIGRAM, UNK
     Route: 048
     Dates: start: 201909
  2. METFORMIN [Suspect]
     Active Substance: METFORMIN HYDROCHLORIDE
     Indication: DIABETES MELLITUS
     Dosage: 500 MILLIGRAM, UNK
     Route: 048
     Dates: start: 202002
  3. DOSTINEX [Suspect]
     Active Substance: CABERGOLINE
     Indication: ADENOMA BENIGN
     Dosage: 0.5 MILLIGRAM, UNK
     Route: 048
     Dates: start: 202002

REACTIONS (1)
  - Hepatocellular injury [Not Recovered/Not Resolved]

NARRATIVE: CASE EVENT DATE: 202002
